FAERS Safety Report 7375029-4 (Version None)
Quarter: 2011Q1

REPORT INFORMATION
  Report Type: 
  Country: None (occurrence: None)
  Receive Date: 20110325
  Receipt Date: 20110322
  Transmission Date: 20110831
  Serious: Yes (Death)
  Sender: FDA-Public Use
  Company Number: PHHY2011AU23394

PATIENT
  Sex: Male

DRUGS (10)
  1. DIAZEPAM [Concomitant]
     Dosage: 5 MG,
     Route: 048
  2. PREDNISOLONE [Concomitant]
     Dosage: 25 MG,
     Route: 048
  3. EPOETIN ALFA [Concomitant]
     Dosage: 10000 U,  WEEKLY
     Route: 058
  4. CALCIUM [Concomitant]
  5. OSTELIN [Concomitant]
  6. PANADEINE FORTE [Concomitant]
     Dosage: 500MG/ 30MG
     Route: 048
  7. ACLASTA [Suspect]
     Dosage: 5 MG
     Route: 042
     Dates: start: 20090421
  8. FRUSEMIDE [Concomitant]
     Dosage: 40 MG,
     Route: 048
  9. NITROLINGUAL PUMPSPRAY [Concomitant]
     Dosage: 400 MCG/DOSE
  10. VITAMIN D [Concomitant]

REACTIONS (1)
  - RENAL FAILURE [None]
